FAERS Safety Report 6056525-9 (Version None)
Quarter: 2009Q1

REPORT INFORMATION
  Report Type: 
  Country: None (occurrence: None)
  Receive Date: 20090129
  Receipt Date: 20080916
  Transmission Date: 20090719
  Serious: No
  Sender: FDA-Public Use
  Company Number: A0748639A

PATIENT
  Sex: Female

DRUGS (1)
  1. COMBIVIR [Suspect]
     Indication: DRUG USE FOR UNKNOWN INDICATION
     Route: 065
     Dates: start: 20080101, end: 20080101

REACTIONS (1)
  - HEADACHE [None]
